FAERS Safety Report 7265538-0 (Version None)
Quarter: 2011Q1

REPORT INFORMATION
  Report Type: 
  Country: None (occurrence: None)
  Receive Date: 20110131
  Receipt Date: 20110117
  Transmission Date: 20110831
  Serious: No
  Sender: FDA-Public Use
  Company Number: FR-ROCHE-752617

PATIENT
  Sex: Female

DRUGS (3)
  1. TAMIFLU [Suspect]
     Dosage: TOOK THREE CAPSULES DAILY FOR THREE DAYS (225 MG) INSTEAD OF TWO CAPS DAILY(75MG TWICE DAILY)
     Route: 065
  2. AUGMENTIN '125' [Concomitant]
  3. TAMIFLU [Suspect]
     Indication: DRUG THERAPY
     Route: 065

REACTIONS (3)
  - PREGNANCY [None]
  - NO ADVERSE EVENT [None]
  - OVERDOSE [None]
